FAERS Safety Report 22986971 (Version 2)
Quarter: 2023Q4

REPORT INFORMATION
  Report Type: Spontaneous
  Country: JP (occurrence: JP)
  Receive Date: 20230926
  Receipt Date: 20231017
  Transmission Date: 20240109
  Serious: Yes (Hospitalization)
  Sender: FDA-Public Use
  Company Number: JP-002147023-NVSJ2023JP013807

PATIENT

DRUGS (22)
  1. RUXOLITINIB [Suspect]
     Active Substance: RUXOLITINIB
     Indication: Myelofibrosis
     Dosage: 5 MG, QD
     Route: 048
     Dates: start: 20211109, end: 20211114
  2. RUXOLITINIB [Suspect]
     Active Substance: RUXOLITINIB
     Dosage: 5 MG, BID
     Route: 048
     Dates: start: 20211115, end: 20211221
  3. RUXOLITINIB [Suspect]
     Active Substance: RUXOLITINIB
     Dosage: 5 MG
     Route: 048
     Dates: start: 20220510
  4. FEBUXOSTAT [Suspect]
     Active Substance: FEBUXOSTAT
     Indication: Product used for unknown indication
     Dosage: 60 MG
     Route: 048
     Dates: end: 20211117
  5. FEBUXOSTAT [Suspect]
     Active Substance: FEBUXOSTAT
     Dosage: 40 MG
     Route: 048
     Dates: start: 20211118
  6. FEBUXOSTAT [Suspect]
     Active Substance: FEBUXOSTAT
     Dosage: 40 MG
     Route: 048
     Dates: start: 20211231
  7. CALCIUM POLYSTYRENE SULFONATE [Concomitant]
     Active Substance: CALCIUM POLYSTYRENE SULFONATE
     Indication: Product used for unknown indication
     Dosage: 25 G, BID
     Route: 048
  8. CALCIUM POLYSTYRENE SULFONATE [Concomitant]
     Active Substance: CALCIUM POLYSTYRENE SULFONATE
     Dosage: UNK
     Route: 048
     Dates: start: 20211231
  9. ASPIRIN [Concomitant]
     Active Substance: ASPIRIN
     Indication: Product used for unknown indication
     Dosage: 100 MG, QD
     Route: 048
  10. HYDREA [Concomitant]
     Active Substance: HYDROXYUREA
     Indication: Polycythaemia
     Dosage: 1000 MG
     Route: 048
  11. HYDREA [Concomitant]
     Active Substance: HYDROXYUREA
     Indication: Myeloproliferative neoplasm
     Dosage: DOSE INCREASED TO 1000 MG/DAY AND 1500 MG/DAY EVERY OTHER DAY
     Route: 048
     Dates: start: 201304
  12. HYDREA [Concomitant]
     Active Substance: HYDROXYUREA
     Dosage: 500 MG
     Route: 048
  13. HYDREA [Concomitant]
     Active Substance: HYDROXYUREA
     Dosage: 500 MG
     Route: 048
     Dates: start: 20211223, end: 20211225
  14. HYDREA [Concomitant]
     Active Substance: HYDROXYUREA
     Dosage: 500 MG
     Route: 048
     Dates: start: 20220106
  15. HUMAN RED BLOOD CELL [Concomitant]
     Active Substance: HUMAN RED BLOOD CELL
     Indication: Product used for unknown indication
     Dosage: 2U
     Route: 065
     Dates: start: 20211223
  16. HUMAN RED BLOOD CELL [Concomitant]
     Active Substance: HUMAN RED BLOOD CELL
     Dosage: 2U
     Route: 065
     Dates: start: 20211224
  17. HUMAN RED BLOOD CELL [Concomitant]
     Active Substance: HUMAN RED BLOOD CELL
     Dosage: 2U
     Route: 065
     Dates: start: 20211226
  18. SODIUM ZIRCONIUM CYCLOSILICATE [Concomitant]
     Active Substance: SODIUM ZIRCONIUM CYCLOSILICATE
     Indication: Product used for unknown indication
     Dosage: 20 G
     Route: 048
     Dates: start: 20220114
  19. SODIUM ZIRCONIUM CYCLOSILICATE [Concomitant]
     Active Substance: SODIUM ZIRCONIUM CYCLOSILICATE
     Dosage: 10 G
     Route: 048
     Dates: start: 20220116
  20. JARDIANCE [Concomitant]
     Active Substance: EMPAGLIFLOZIN
     Indication: Product used for unknown indication
     Dosage: 10 MG
     Route: 048
     Dates: start: 20211230
  21. CARVEDILOL [Concomitant]
     Active Substance: CARVEDILOL
     Indication: Product used for unknown indication
     Dosage: 2.5 MG
     Route: 048
     Dates: start: 20220104
  22. SPIRONOLACTONE [Concomitant]
     Active Substance: SPIRONOLACTONE
     Indication: Product used for unknown indication
     Dosage: 25 MG
     Route: 048
     Dates: start: 20211223, end: 20220128

REACTIONS (2)
  - Cardiac failure [Recovered/Resolved]
  - Oedema [Recovered/Resolved]

NARRATIVE: CASE EVENT DATE: 20211115
